FAERS Safety Report 4616716-8 (Version None)
Quarter: 2005Q1

REPORT INFORMATION
  Report Type: 
  Country: None (occurrence: None)
  Receive Date: 20050321
  Receipt Date: 20050315
  Transmission Date: 20050727
  Serious: Yes (Death, Hospitalization)
  Sender: FDA-Public Use
  Company Number: GRP05000058

PATIENT
  Age: 90 Year
  Sex: Female

DRUGS (1)
  1. ACTONEL [Suspect]
     Indication: OSTEOPOROSIS
     Dosage: 35 MG, 1 ONLY, ORAL
     Route: 048
     Dates: start: 20050127, end: 20050127

REACTIONS (4)
  - CARDIAC DISORDER [None]
  - PAIN IN EXTREMITY [None]
  - SUDDEN DEATH [None]
  - VOMITING [None]
